FAERS Safety Report 8293360-5 (Version None)
Quarter: 2012Q2

REPORT INFORMATION
  Report Type: 
  Country: None (occurrence: None)
  Receive Date: 20120417
  Receipt Date: 20111004
  Transmission Date: 20120825
  Serious: No
  Sender: FDA-Public Use
  Company Number: US-ASTRAZENECA-2011SE59525

PATIENT
  Age: 35 Year
  Sex: Female
  Weight: 70.3 kg

DRUGS (3)
  1. NEXIUM [Suspect]
     Indication: HELICOBACTER INFECTION
     Route: 048
  2. PRILOSEC [Suspect]
     Indication: HELICOBACTER INFECTION
     Route: 048
  3. NEXIUM [Suspect]
     Indication: GASTROINTESTINAL ULCER
     Route: 048

REACTIONS (4)
  - HEADACHE [None]
  - NAUSEA [None]
  - DRUG DOSE OMISSION [None]
  - ABDOMINAL PAIN [None]
